FAERS Safety Report 15075536 (Version 1)
Quarter: 2018Q2

REPORT INFORMATION
  Report Type: Report from Study
  Country: US (occurrence: US)
  Receive Date: 20180627
  Receipt Date: 20180627
  Transmission Date: 20180711
  Serious: Yes (Hospitalization, Other)
  Sender: FDA-Public Use
  Company Number: US-SAOL THERAPEUTICS-2018SAO00843

PATIENT
  Age: 17 Year
  Sex: Male

DRUGS (4)
  1. LIORESAL [Suspect]
     Active Substance: BACLOFEN
     Indication: MUSCLE SPASTICITY
     Dosage: 950 ?G, \DAY
     Route: 037
  2. LIORESAL [Suspect]
     Active Substance: BACLOFEN
     Dosage: 975 ?G, \DAY
     Route: 037
  3. LIORESAL [Suspect]
     Active Substance: BACLOFEN
     Dosage: MINIMUM RATE
  4. LIORESAL [Suspect]
     Active Substance: BACLOFEN
     Dosage: 150 ?G, \DAY

REACTIONS (14)
  - Bradycardia [Recovered/Resolved]
  - Unevaluable event [Unknown]
  - Loss of consciousness [Recovered/Resolved]
  - Overdose [Recovered/Resolved]
  - Haemorrhage [Recovered/Resolved]
  - Device issue [Recovered/Resolved]
  - Drug withdrawal syndrome [Recovered/Resolved]
  - Hypotension [Recovered/Resolved]
  - Respiratory depression [Recovered/Resolved]
  - Sedation [Recovered/Resolved]
  - Somnolence [Not Recovered/Not Resolved]
  - Device damage [Recovered/Resolved]
  - Incorrect route of drug administration [Recovered/Resolved]
  - Pneumonia streptococcal [Unknown]

NARRATIVE: CASE EVENT DATE: 201806
